FAERS Safety Report 26129740 (Version 1)
Quarter: 2025Q4

REPORT INFORMATION
  Report Type: Spontaneous
  Country: US (occurrence: US)
  Receive Date: 20251208
  Receipt Date: 20251208
  Transmission Date: 20260118
  Serious: No
  Sender: NOVARTIS
  Company Number: US-002147023-NVSC2025US185036

PATIENT
  Sex: Male

DRUGS (4)
  1. PLUVICTO [Suspect]
     Active Substance: LUTETIUM LU-177 VIPIVOTIDE TETRAXETAN
     Indication: Product used for unknown indication
     Dosage: 1 ST, EVERY 6 WEEKS
     Route: 065
     Dates: start: 20251001
  2. PLUVICTO [Suspect]
     Active Substance: LUTETIUM LU-177 VIPIVOTIDE TETRAXETAN
     Dosage: 2ND, EVERY 6 WEEKS
     Route: 065
     Dates: start: 20251120
  3. PREDNISONE [Concomitant]
     Active Substance: PREDNISONE
     Indication: Product used for unknown indication
     Dosage: UNK
     Route: 065
  4. ORGOVYX [Concomitant]
     Active Substance: RELUGOLIX
     Indication: Product used for unknown indication
     Dosage: UNK
     Route: 065

REACTIONS (8)
  - Arthralgia [Unknown]
  - Nausea [Unknown]
  - Testicular pain [Unknown]
  - Fatigue [Unknown]
  - Dry mouth [Unknown]
  - Decreased appetite [Unknown]
  - Anxiety [Unknown]
  - Back pain [Unknown]
